FAERS Safety Report 21865005 (Version 1)
Quarter: 2023Q1

REPORT INFORMATION
  Report Type: Other
  Country: JP (occurrence: JP)
  Receive Date: 20230116
  Receipt Date: 20230116
  Transmission Date: 20230417
  Serious: Yes (Other)
  Sender: FDA-Public Use
  Company Number: JP-CHUGAI-A2020033790ROCHE

PATIENT
  Age: 51 Year
  Sex: Female
  Weight: 58 kg

DRUGS (23)
  1. OBINUTUZUMAB [Suspect]
     Active Substance: OBINUTUZUMAB
     Indication: Follicular lymphoma
     Dosage: 1000MG,1 TIMES IN MOST RECENT DOSE 09/OCT/2019
     Route: 041
     Dates: start: 20191009
  2. OBINUTUZUMAB [Suspect]
     Active Substance: OBINUTUZUMAB
     Dosage: 1000MG,1 TIMES IN MOST RECENT DOSE 24/OCT/2019
     Route: 041
     Dates: start: 20191024
  3. OBINUTUZUMAB [Suspect]
     Active Substance: OBINUTUZUMAB
     Dosage: 1000MG,1 TIMES IN MOST RECENT DOSE 31/OCT/2019
     Route: 041
     Dates: start: 20191031
  4. OBINUTUZUMAB [Suspect]
     Active Substance: OBINUTUZUMAB
     Dosage: 1000MG,1 TIMES IN MOST RECENT DOSE 07/NOV/2019
     Route: 041
     Dates: start: 20191107
  5. OBINUTUZUMAB [Suspect]
     Active Substance: OBINUTUZUMAB
     Dosage: 1000MG,1 TIMES IN MOST RECENT DOSE 15/NOV/2019
     Route: 041
     Dates: start: 20191115
  6. OBINUTUZUMAB [Suspect]
     Active Substance: OBINUTUZUMAB
     Dosage: 1000MG,1 TIMES IN MOST RECENT DOSE 18/DEC/2019
     Route: 041
     Dates: start: 20191218
  7. OBINUTUZUMAB [Suspect]
     Active Substance: OBINUTUZUMAB
     Dosage: 1000MG,1 TIMES IN MOST RECENT DOSE 05/JAN/2020
     Route: 041
     Dates: start: 20200105
  8. OBINUTUZUMAB [Suspect]
     Active Substance: OBINUTUZUMAB
     Route: 041
     Dates: start: 20200225
  9. OBINUTUZUMAB [Suspect]
     Active Substance: OBINUTUZUMAB
     Route: 041
     Dates: start: 20200324
  10. OBINUTUZUMAB [Suspect]
     Active Substance: OBINUTUZUMAB
     Dosage: 1000 MILLIGRAM, QD MOST RECENT DOSE 28/MAY/2020
     Route: 041
     Dates: start: 20200528
  11. OBINUTUZUMAB [Suspect]
     Active Substance: OBINUTUZUMAB
     Dosage: 1000 MILLIGRAM, QD  MOST RECENT DOSE 30/JUL/2020
     Route: 041
     Dates: start: 20200730
  12. OBINUTUZUMAB [Suspect]
     Active Substance: OBINUTUZUMAB
     Dosage: 1000 MILLIGRAM, QD MOST RECENT DOSE 24/SEP/2020
     Route: 041
     Dates: start: 20200924
  13. OBINUTUZUMAB [Suspect]
     Active Substance: OBINUTUZUMAB
     Dosage: 1000 MILLIGRAM, QD  MOST RECENT DOSE 19/NOV/2020
     Route: 041
     Dates: start: 20201119
  14. OBINUTUZUMAB [Suspect]
     Active Substance: OBINUTUZUMAB
     Dosage: 1000 MILLIGRAM, QD MOST RECENT DOSE 14/JAN/2021
     Route: 041
     Dates: start: 20210114
  15. OBINUTUZUMAB [Suspect]
     Active Substance: OBINUTUZUMAB
     Dosage: 1000 MILLIGRAM, QD MOST RECENT DOSE 11/MAR/2021
     Route: 041
     Dates: start: 20210311
  16. OBINUTUZUMAB [Suspect]
     Active Substance: OBINUTUZUMAB
     Dosage: 1000 MILLIGRAM, QD MOST RECENT DOSE 06/MAY/2021
     Route: 041
     Dates: start: 20210506
  17. OBINUTUZUMAB [Suspect]
     Active Substance: OBINUTUZUMAB
     Dosage: 1000 MILLIGRAM, QD MOST RECENT DOSE 01/JUL/2021
     Route: 041
     Dates: start: 20210701
  18. OBINUTUZUMAB [Suspect]
     Active Substance: OBINUTUZUMAB
     Dosage: 1000 MILLIGRAM, QD MOST RECENT DOSE 26/AUG/2021
     Route: 041
     Dates: start: 20210826
  19. OBINUTUZUMAB [Suspect]
     Active Substance: OBINUTUZUMAB
     Dosage: 1000 MILLIGRAM, QD MOST RECENT DOSE 21/OCT/2021
     Route: 041
     Dates: start: 20211021
  20. OBINUTUZUMAB [Suspect]
     Active Substance: OBINUTUZUMAB
     Dosage: 1000 MILLIGRAM, QD MOST RECENT DOSE 16/DEC/2021
     Route: 041
     Dates: start: 20211216
  21. OBINUTUZUMAB [Suspect]
     Active Substance: OBINUTUZUMAB
     Dosage: 1000 MILLIGRAM, QD MOST RECENT DOSE 10/FEB/2022
     Route: 041
     Dates: start: 20220210
  22. OBINUTUZUMAB [Suspect]
     Active Substance: OBINUTUZUMAB
     Dosage: 1000 MILLIGRAM, QD MOST RECENT DOSE 07/APR/2022
     Route: 041
     Dates: start: 20220407
  23. BENDAMUSTINE HYDROCHLORIDE [Concomitant]
     Active Substance: BENDAMUSTINE HYDROCHLORIDE
     Indication: Follicular lymphoma
     Route: 041
     Dates: start: 20191005, end: 20200325

REACTIONS (4)
  - Myelosuppression [Unknown]
  - Hepatic function abnormal [Not Recovered/Not Resolved]
  - Chronic sinusitis [Recovered/Resolved]
  - Infusion related reaction [Unknown]

NARRATIVE: CASE EVENT DATE: 20200709
